FAERS Safety Report 4595007-8 (Version None)
Quarter: 2005Q1

REPORT INFORMATION
  Report Type: 
  Country: None (occurrence: None)
  Receive Date: 20050223
  Receipt Date: 20050209
  Transmission Date: 20050727
  Serious: Yes (Hospitalization)
  Sender: FDA-Public Use
  Company Number: 2004BI001197

PATIENT
  Age: 58 Year
  Sex: Female

DRUGS (3)
  1. AVONEX [Suspect]
     Indication: MULTIPLE SCLEROSIS
     Dosage: QW; IM
     Route: 030
  2. SYNTHROID [Concomitant]
  3. PROZAC [Concomitant]

REACTIONS (2)
  - BRAIN STEM INFARCTION [None]
  - CEREBROVASCULAR ACCIDENT [None]
